FAERS Safety Report 19878677 (Version 1)
Quarter: 2021Q3

REPORT INFORMATION
  Report Type: Spontaneous
  Country: GB (occurrence: GB)
  Receive Date: 20210924
  Receipt Date: 20210924
  Transmission Date: 20211014
  Serious: Yes (Other)
  Sender: FDA-Public Use
  Company Number: GB-DRREDDYS-SPO/UKI/21/0140334

PATIENT
  Age: 59 Year
  Sex: Female
  Weight: 114 kg

DRUGS (14)
  1. PREGABALIN. [Suspect]
     Active Substance: PREGABALIN
     Indication: ILL-DEFINED DISORDER
     Dosage: TAKE ONE TWICE DAILY
     Dates: start: 20210405, end: 20210901
  2. CHLORAMPHENICOL [Concomitant]
     Active Substance: CHLORAMPHENICOL
     Indication: ILL-DEFINED DISORDER
     Dosage: ONE DROP TO THE AFFECTED EYE(S) EVERY TWO HOURS
     Dates: start: 20210624, end: 20210701
  3. CODEINE PHOSPHATE [Concomitant]
     Active Substance: CODEINE PHOSPHATE
     Indication: ILL-DEFINED DISORDER
     Dosage: TAKE ONE OR TWO 4 TIMES/DAY WHEN REQUIRED
     Dates: start: 20201020
  4. LAMOTRIGINE. [Concomitant]
     Active Substance: LAMOTRIGINE
     Indication: ILL-DEFINED DISORDER
     Dosage: TAKE TWICE DAILY
  5. PREGABALIN. [Suspect]
     Active Substance: PREGABALIN
     Dates: start: 20210901
  6. SIMVASTATIN. [Concomitant]
     Active Substance: SIMVASTATIN
     Indication: ILL-DEFINED DISORDER
     Dosage: TAKE ONE AT NIGHT
     Dates: start: 20210113
  7. CALCI?D [Concomitant]
     Active Substance: CALCIUM CARBONATE\CHOLECALCIFEROL
     Indication: ILL-DEFINED DISORDER
     Dates: start: 20210413
  8. OMEPRAZOLE. [Concomitant]
     Active Substance: OMEPRAZOLE
     Indication: ILL-DEFINED DISORDER
     Dosage: TAKE ONE DAILY
     Dates: start: 20210113, end: 20210625
  9. NAPROXEN. [Concomitant]
     Active Substance: NAPROXEN
     Indication: ILL-DEFINED DISORDER
     Dosage: TAKE ONE TWICE DAILY
     Dates: start: 20210113
  10. SPIRONOLACTONE. [Concomitant]
     Active Substance: SPIRONOLACTONE
     Indication: ILL-DEFINED DISORDER
     Dosage: TAKE TWO DAILY
     Dates: start: 20210113
  11. LEVETIRACETAM. [Concomitant]
     Active Substance: LEVETIRACETAM
     Indication: ILL-DEFINED DISORDER
     Dosage: TAKE 3 TABLETS TWICE DAILY
     Dates: start: 20210113
  12. BUPRENORPHINE. [Concomitant]
     Active Substance: BUPRENORPHINE
     Indication: ILL-DEFINED DISORDER
     Dates: start: 20210908
  13. CLOBAZAM. [Concomitant]
     Active Substance: CLOBAZAM
     Indication: ILL-DEFINED DISORDER
     Dosage: TAKE TWO AT NIGHT
     Dates: start: 20210113
  14. LANSOPRAZOLE. [Concomitant]
     Active Substance: LANSOPRAZOLE
     Indication: ILL-DEFINED DISORDER
     Dosage: TAKE ONE ONCE DAILY
     Dates: start: 20210625

REACTIONS (1)
  - Illness [Unknown]

NARRATIVE: CASE EVENT DATE: 20210918
